FAERS Safety Report 13591611 (Version 1)
Quarter: 2017Q2

REPORT INFORMATION
  Report Type: Spontaneous
  Country: US (occurrence: US)
  Receive Date: 20170530
  Receipt Date: 20170530
  Transmission Date: 20170830
  Serious: Yes (Other)
  Sender: FDA-Public Use
  Company Number: None

PATIENT
  Age: 36 Year
  Sex: Female
  Weight: 103.5 kg

DRUGS (2)
  1. LEVOTHYROXINE. [Concomitant]
     Active Substance: LEVOTHYROXINE
  2. WELLBUTRIN [Suspect]
     Active Substance: BUPROPION HYDROCHLORIDE
     Indication: SMOKING CESSATION THERAPY
     Dates: start: 20151001, end: 20160531

REACTIONS (6)
  - Feeling abnormal [None]
  - Palpitations [None]
  - Anxiety [None]
  - Headache [None]
  - Dizziness [None]
  - Arrhythmia [None]

NARRATIVE: CASE EVENT DATE: 20170530
